FAERS Safety Report 22386162 (Version 2)
Quarter: 2023Q4

REPORT INFORMATION
  Report Type: Spontaneous
  Country: US (occurrence: None)
  Receive Date: 20230530
  Receipt Date: 20231205
  Transmission Date: 20240110
  Serious: Yes (Other)
  Sender: FDA-Public Use
  Company Number: US-ROCHE-3358022

PATIENT
  Sex: Female

DRUGS (1)
  1. OCREVUS [Suspect]
     Active Substance: OCRELIZUMAB
     Indication: Multiple sclerosis
     Dosage: EVERY 6 MONTHS, STRENGTH: 300 MG/10 ML
     Route: 042
     Dates: start: 202204

REACTIONS (4)
  - Multiple sclerosis [Not Recovered/Not Resolved]
  - Hepatic enzyme increased [Unknown]
  - Fall [Unknown]
  - Drug ineffective [Unknown]
